FAERS Safety Report 7462195-5 (Version None)
Quarter: 2011Q2

REPORT INFORMATION
  Report Type: 
  Country: None (occurrence: None)
  Receive Date: 20110506
  Receipt Date: 20110427
  Transmission Date: 20111010
  Serious: Yes (Other)
  Sender: FDA-Public Use
  Company Number: GB-SANOFI-AVENTIS-2011SA016431

PATIENT
  Age: 79 Year
  Sex: Male
  Weight: 80 kg

DRUGS (14)
  1. GLICLAZIDE [Concomitant]
  2. PARACETAMOL [Concomitant]
     Dosage: AS NECESSARY
  3. LEFLUNOMIDE [Suspect]
     Indication: RHEUMATOID ARTHRITIS
     Route: 048
     Dates: start: 20101201
  4. FINASTERIDE [Concomitant]
  5. PERINDOPRIL [Concomitant]
  6. METFORMIN [Concomitant]
  7. LACTULOSE [Concomitant]
     Dosage: AS NECESSARY
  8. PREDNISOLONE [Concomitant]
  9. SIMVASTATIN [Concomitant]
  10. TAMSULOSIN HCL [Concomitant]
  11. ALENDRONATE SODIUM [Concomitant]
  12. ADALAT [Concomitant]
  13. ADCAL-D3 [Concomitant]
  14. OMEPRAZOLE [Concomitant]

REACTIONS (4)
  - VASCULITIC RASH [None]
  - SKIN ULCER [None]
  - DIABETIC FOOT [None]
  - SKIN DISORDER [None]
